FAERS Safety Report 9713783 (Version 10)
Quarter: 2016Q2

REPORT INFORMATION
  Report Type: Report from Study
  Country: US (occurrence: US)
  Receive Date: 20131126
  Receipt Date: 20160628
  Transmission Date: 20160815
  Serious: Yes (Hospitalization, Other)
  Sender: FDA-Public Use
  Company Number: US-ALEXION PHARMACEUTICALS INC.-A201303598

PATIENT
  Age: 70 Year
  Sex: Male

DRUGS (7)
  1. COUMADIN [Concomitant]
     Active Substance: WARFARIN SODIUM
     Indication: PRODUCT USED FOR UNKNOWN INDICATION
     Dosage: UNK, QD
     Route: 065
  2. ICBUTROL APAC [Concomitant]
     Indication: PRODUCT USED FOR UNKNOWN INDICATION
     Dosage: 2 DF, UNK
     Route: 065
  3. SOLIRIS [Suspect]
     Active Substance: ECULIZUMAB
     Dosage: 900 MG, Q10D
     Route: 042
     Dates: start: 20070925
  4. SOLIRIS [Suspect]
     Active Substance: ECULIZUMAB
     Indication: PAROXYSMAL NOCTURNAL HAEMOGLOBINURIA
     Dosage: UNK
     Route: 042
  5. PROCRIT [Concomitant]
     Active Substance: ERYTHROPOIETIN
     Indication: PRODUCT USED FOR UNKNOWN INDICATION
     Dosage: UNK, QW
     Route: 065
  6. TOPAMAX [Concomitant]
     Active Substance: TOPIRAMATE
     Indication: PRODUCT USED FOR UNKNOWN INDICATION
     Dosage: 100 MG, BID
     Route: 065
  7. SOLIRIS [Suspect]
     Active Substance: ECULIZUMAB
     Dosage: 1200 MG, UNK
     Route: 042

REACTIONS (17)
  - Haemorrhage [Unknown]
  - Visual acuity reduced [Unknown]
  - Infection [Not Recovered/Not Resolved]
  - Clostridium difficile infection [Unknown]
  - Diarrhoea [Unknown]
  - Transfusion [Unknown]
  - Pyrexia [Unknown]
  - Hernia [Not Recovered/Not Resolved]
  - Gastrointestinal haemorrhage [Unknown]
  - Inappropriate schedule of drug administration [Unknown]
  - Posterior reversible encephalopathy syndrome [Unknown]
  - Hypoacusis [Unknown]
  - Incorrect dose administered [Unknown]
  - Staphylococcal infection [Unknown]
  - Seizure [Unknown]
  - Rectal haemorrhage [Not Recovered/Not Resolved]
  - Diarrhoea [Not Recovered/Not Resolved]

NARRATIVE: CASE EVENT DATE: 20070925
